FAERS Safety Report 6543401-8 (Version None)
Quarter: 2010Q1

REPORT INFORMATION
  Report Type: 
  Country: None (occurrence: None)
  Receive Date: 20100120
  Receipt Date: 20100119
  Transmission Date: 20100710
  Serious: Yes (Other)
  Sender: FDA-Public Use
  Company Number: A0839630A

PATIENT
  Age: 56 Year
  Sex: Female

DRUGS (1)
  1. ALLI [Suspect]
     Indication: DRUG USE FOR UNKNOWN INDICATION
     Route: 048
     Dates: start: 20090101

REACTIONS (20)
  - ABDOMINAL DISCOMFORT [None]
  - ABDOMINAL DISTENSION [None]
  - ABDOMINAL SYMPTOM [None]
  - BACK PAIN [None]
  - BLOOD CHOLESTEROL INCREASED [None]
  - CONDITION AGGRAVATED [None]
  - DIARRHOEA [None]
  - FEAR OF EATING [None]
  - GALLBLADDER DISORDER [None]
  - GALLBLADDER POLYP [None]
  - GASTROINTESTINAL DISORDER [None]
  - HEPATIC CYST [None]
  - LIVER DISORDER [None]
  - LOW DENSITY LIPOPROTEIN INCREASED [None]
  - MUSCULOSKELETAL CHEST PAIN [None]
  - PAIN [None]
  - PAIN IN EXTREMITY [None]
  - PANCREATIC DISORDER [None]
  - PANCREATITIS CHRONIC [None]
  - PRODUCT QUALITY ISSUE [None]
